FAERS Safety Report 10021455 (Version 1)
Quarter: 2014Q1

REPORT INFORMATION
  Report Type: Spontaneous
  Country: US (occurrence: None)
  Receive Date: 20140318
  Receipt Date: 20140318
  Transmission Date: 20141002
  Serious: Yes (Other)
  Sender: FDA-Public Use
  Company Number: None

PATIENT
  Age: 32 Year
  Sex: Female
  Weight: 99.79 kg

DRUGS (1)
  1. MIRENA [Suspect]

REACTIONS (2)
  - Device extrusion [None]
  - Vaginal haemorrhage [None]
